FAERS Safety Report 8865517 (Version 2)
Quarter: 2013Q3

REPORT INFORMATION
  Report Type: Spontaneous
  Country: US (occurrence: US)
  Receive Date: 20121024
  Receipt Date: 20130930
  Transmission Date: 20140515
  Serious: No
  Sender: FDA-Public Use
  Company Number: US-AMGEN-USASP2012003314

PATIENT
  Age: 55 Year
  Sex: Female
  Weight: 61.68 kg

DRUGS (1)
  1. ENBREL [Suspect]
     Indication: RHEUMATOID ARTHRITIS
     Dosage: 50 MG, QWK
     Route: 058
     Dates: start: 20060713

REACTIONS (4)
  - Limb discomfort [Unknown]
  - Pain in extremity [Unknown]
  - Malaise [Unknown]
  - Arthralgia [Unknown]
